FAERS Safety Report 6025350-7 (Version None)
Quarter: 2008Q4

REPORT INFORMATION
  Report Type: 
  Country: None (occurrence: None)
  Receive Date: 20081231
  Receipt Date: 20081223
  Transmission Date: 20090506
  Serious: Yes (Hospitalization)
  Sender: FDA-Public Use
  Company Number: FR-MERCK-0812FRA00090

PATIENT
  Age: 73 Year
  Sex: Male

DRUGS (10)
  1. ZOCOR [Suspect]
     Indication: HYPERCHOLESTEROLAEMIA
     Route: 048
     Dates: start: 20030101, end: 20080909
  2. PREGABALIN [Suspect]
     Indication: NEURALGIA
     Route: 048
     Dates: start: 20080827, end: 20080906
  3. VALSARTAN [Concomitant]
     Route: 048
  4. ASPIRIN LYSINE [Concomitant]
     Route: 048
  5. INDAPAMIDE [Concomitant]
     Route: 048
  6. CLOPIDOGREL BISULFATE [Concomitant]
     Route: 048
  7. BENSERAZIDE HYDROCHLORIDE AND LEVODOPA [Concomitant]
     Route: 048
  8. ALFUZOSIN HYDROCHLORIDE [Concomitant]
     Indication: BENIGN PROSTATIC HYPERPLASIA
     Route: 048
  9. INSULIN [Concomitant]
     Route: 058
  10. ACARBOSE [Concomitant]
     Indication: TYPE 2 DIABETES MELLITUS
     Route: 048

REACTIONS (3)
  - BLOOD CREATINE PHOSPHOKINASE INCREASED [None]
  - MYALGIA [None]
  - MYOGLOBINAEMIA [None]
